FAERS Safety Report 9830519 (Version 2)
Quarter: 2014Q1

REPORT INFORMATION
  Report Type: Spontaneous
  Country: FR (occurrence: FR)
  Receive Date: 20140120
  Receipt Date: 20140218
  Transmission Date: 20141002
  Serious: Yes (Hospitalization)
  Sender: FDA-Public Use
  Company Number: FR-NOVOPROD-398043

PATIENT
  Age: 50 Year
  Sex: Female
  Weight: 74 kg

DRUGS (10)
  1. VICTOZA [Suspect]
     Indication: TYPE 2 DIABETES MELLITUS
     Dosage: 1.80 MG, QD
     Route: 058
     Dates: start: 2011, end: 20131221
  2. OMACOR [Concomitant]
     Indication: DYSLIPIDAEMIA
     Dosage: 3 DF, QD
     Route: 048
     Dates: end: 201312
  3. METFORMIN [Concomitant]
     Indication: DIABETES MELLITUS
     Dosage: 1700 MG, QD
     Route: 048
     Dates: start: 2008
  4. LASILIX                            /00032601/ [Concomitant]
     Indication: CARDIAC FAILURE
     Dosage: 40 MG, QD
     Route: 048
     Dates: start: 2008
  5. TRIATEC                            /00116401/ [Concomitant]
     Indication: CARDIAC FAILURE
     Dosage: 5 MG, QD
     Route: 048
     Dates: start: 2008
  6. KALEORID [Concomitant]
     Indication: HYPOKALAEMIA
     Dosage: 1000 MG, QD
     Route: 048
     Dates: end: 201312
  7. KARDEGIC [Concomitant]
     Indication: CARDIAC FAILURE
     Dosage: 75 MG, QD
     Route: 048
  8. CARDENSIEL [Concomitant]
     Indication: CARDIAC FAILURE
     Dosage: 2.50 MG, QD
     Route: 048
  9. NUREFLEX [Concomitant]
     Dosage: 1200 MG, QD
     Route: 048
     Dates: end: 201312
  10. VENTOLINE                          /00139501/ [Concomitant]
     Indication: ASTHMA
     Dosage: UNK (AS NEEDED)
     Route: 055

REACTIONS (2)
  - Blood triglycerides increased [Unknown]
  - Pancreatitis acute [Recovering/Resolving]
